FAERS Safety Report 4714726-3 (Version None)
Quarter: 2005Q3

REPORT INFORMATION
  Report Type: 
  Country: None (occurrence: None)
  Receive Date: 20050715
  Receipt Date: 20050705
  Transmission Date: 20060218
  Serious: Yes (Hospitalization)
  Sender: FDA-Public Use
  Company Number: JP-BRISTOL-MYERS SQUIBB COMPANY-13038039

PATIENT
  Age: 60 Year
  Sex: Male

DRUGS (5)
  1. ENDOXAN [Suspect]
     Indication: LYMPHOMA
     Dates: start: 19990327, end: 19990510
  2. CISPLATIN [Suspect]
     Indication: LYMPHOMA
     Dates: start: 19990610, end: 19990715
  3. VINCRISTINE SULFATE [Suspect]
     Indication: LYMPHOMA
     Dates: start: 19990327, end: 19990510
  4. ADRIACIN [Suspect]
     Indication: LYMPHOMA
     Dates: start: 19990327, end: 19990510
  5. FLUOROURACIL [Suspect]
     Indication: LYMPHOMA
     Dates: start: 19990610, end: 19990715

REACTIONS (1)
  - PNEUMONITIS [None]
